FAERS Safety Report 8357401-9 (Version None)
Quarter: 2012Q2

REPORT INFORMATION
  Report Type: 
  Country: None (occurrence: None)
  Receive Date: 20120514
  Receipt Date: 20110530
  Transmission Date: 20120825
  Serious: Yes (Other)
  Sender: FDA-Public Use
  Company Number: CN-ROCHE-779698

PATIENT
  Age: 84 Year
  Sex: Female
  Weight: 50 kg

DRUGS (2)
  1. XELODA [Suspect]
     Route: 048
     Dates: start: 20110215, end: 20110515
  2. XELODA [Suspect]
     Indication: RECTAL CANCER METASTATIC
     Dosage: 500MG IN THE MORNING,1000MG IN THE EVENING.
     Route: 048
     Dates: start: 20100610, end: 20110215

REACTIONS (1)
  - METASTASIS [None]
